FAERS Safety Report 7720149-5 (Version None)
Quarter: 2011Q3

REPORT INFORMATION
  Report Type: 
  Country: None (occurrence: None)
  Receive Date: 20110826
  Receipt Date: 20110826
  Transmission Date: 20111222
  Serious: No
  Sender: FDA-Public Use
  Company Number: None

PATIENT
  Sex: Female
  Weight: 83.9154 kg

DRUGS (1)
  1. METFORMIN HCL [Suspect]
     Indication: DIABETES MELLITUS
     Dosage: TAKE 2 TWICE DAILY

REACTIONS (5)
  - PRODUCT SUBSTITUTION ISSUE [None]
  - DIZZINESS [None]
  - CHEST PAIN [None]
  - HYPERHIDROSIS [None]
  - NAUSEA [None]
